FAERS Safety Report 7559074-1 (Version None)
Quarter: 2011Q2

REPORT INFORMATION
  Report Type: 
  Country: None (occurrence: None)
  Receive Date: 20110621
  Receipt Date: 20110609
  Transmission Date: 20111010
  Serious: Yes (Hospitalization)
  Sender: FDA-Public Use
  Company Number: JP-JNJFOC-20110601774

PATIENT
  Sex: Male

DRUGS (26)
  1. LEVOFLOXACIN [Suspect]
     Indication: OTITIS MEDIA
     Route: 048
     Dates: start: 20110519, end: 20110525
  2. MECOBALAMIN [Concomitant]
     Indication: NEUROPATHY PERIPHERAL
     Route: 048
  3. NIFEDIPINE [Concomitant]
     Indication: HYPERTENSION
     Dosage: 1 DF TWICE A DAY
     Route: 048
  4. ZITHROMAX [Concomitant]
     Dosage: 1 DF TWICE A DAY
     Route: 065
  5. CEPHADOL [Concomitant]
     Indication: DIZZINESS
     Dosage: 1 DF TWICE A DAY
     Route: 065
  6. DOXAZOSIN MESYLATE [Concomitant]
     Indication: HYPERTENSION
     Dosage: 1 DF TWICE A DAY
     Route: 065
  7. ALLEGRA [Concomitant]
     Indication: HYPERSENSITIVITY
     Route: 048
  8. PRODONER [Concomitant]
     Route: 048
  9. LAC B [Concomitant]
     Indication: GASTROINTESTINAL DISORDER
     Dosage: 1 DF TWICE A DAY
     Route: 065
  10. NESPO [Concomitant]
     Indication: NEPHROGENIC ANAEMIA
     Route: 042
  11. CALCIUM CARBONATE [Concomitant]
     Indication: HYPERPHOSPHATAEMIA
     Dosage: 1 DF TWICE A DAY
     Route: 048
  12. ALLOPURINOL [Concomitant]
     Indication: HYPERURICAEMIA
     Route: 048
  13. FAMOSTAGINE-D [Concomitant]
     Route: 048
  14. HERBAL EXTRACTS NOS [Concomitant]
     Dosage: 1 DF TWICE A DAY
     Route: 065
  15. NAUZELIN [Concomitant]
     Indication: GASTROINTESTINAL MOTILITY DISORDER
     Dosage: 1 DF TWICE A DAY
     Route: 065
  16. CONSTAN [Concomitant]
     Route: 048
  17. CARVEDILOL [Concomitant]
     Indication: HYPERTENSION
     Dosage: 1 DF TWICE A DAY
     Route: 048
  18. EPADEL S [Concomitant]
     Route: 048
  19. CLARITIN [Concomitant]
     Dosage: 1 DF TWICE A DAY
     Route: 065
  20. CELESTAMINE TAB [Concomitant]
     Dosage: 1 DF TWICE A DAY
     Route: 065
  21. CALFINA [Concomitant]
     Route: 048
  22. OLMESARTAN MEDOXOMIL [Concomitant]
     Route: 048
  23. SHOUSEIRYUUTOU [Concomitant]
     Dosage: 1 DF TWICE A DAY
     Route: 065
  24. ASPIRIN [Concomitant]
     Indication: ANTIPLATELET THERAPY
     Route: 048
  25. TOWATHIEN [Concomitant]
     Dosage: 1 DF TWICE A DAY
     Route: 065
  26. MUCODYNE [Concomitant]
     Dosage: 1 DF TWICE A DAY
     Route: 065

REACTIONS (8)
  - TOXICITY TO VARIOUS AGENTS [None]
  - NAUSEA [None]
  - CONVULSION [None]
  - MUSCLE SPASMS [None]
  - INSOMNIA [None]
  - CONFUSIONAL STATE [None]
  - OVERDOSE [None]
  - VOMITING [None]
